FAERS Safety Report 20845147 (Version 1)
Quarter: 2022Q2

REPORT INFORMATION
  Report Type: Spontaneous
  Country: US (occurrence: None)
  Receive Date: 20220518
  Receipt Date: 20220518
  Transmission Date: 20220720
  Serious: Yes (Hospitalization)
  Sender: FDA-Public Use
  Company Number: None

PATIENT
  Sex: Male
  Weight: 81.6 kg

DRUGS (1)
  1. CISPLATIN [Suspect]
     Active Substance: CISPLATIN

REACTIONS (6)
  - Dehydration [None]
  - Oropharyngeal pain [None]
  - Failure to thrive [None]
  - Hypophagia [None]
  - Weight decreased [None]
  - Dysphagia [None]

NARRATIVE: CASE EVENT DATE: 20220512
